FAERS Safety Report 6636678-1 (Version None)
Quarter: 2010Q1

REPORT INFORMATION
  Report Type: 
  Country: None (occurrence: None)
  Receive Date: 20100316
  Receipt Date: 20100308
  Transmission Date: 20100710
  Serious: Yes (Hospitalization)
  Sender: FDA-Public Use
  Company Number: A0850092A

PATIENT
  Age: 59 Year
  Sex: Male
  Weight: 77.7 kg

DRUGS (1)
  1. AVANDARYL [Suspect]
     Route: 048
     Dates: start: 20060503, end: 20070623

REACTIONS (2)
  - CORONARY ARTERY OCCLUSION [None]
  - MYOCARDIAL INFARCTION [None]
